FAERS Safety Report 9849398 (Version 1)
Quarter: 2014Q1

REPORT INFORMATION
  Report Type: Spontaneous
  Country: ZA (occurrence: ZA)
  Receive Date: 20140128
  Receipt Date: 20140128
  Transmission Date: 20141002
  Serious: Yes (Other)
  Sender: FDA-Public Use
  Company Number: ZA-PFIZER INC-2014025788

PATIENT
  Age: 9 Year
  Sex: Male

DRUGS (1)
  1. METHYLPREDNISOLONE [Suspect]
     Indication: NEPHROTIC SYNDROME
     Dosage: 40 MG, DAILY
     Dates: start: 1962

REACTIONS (3)
  - Exophthalmos [Recovered/Resolved]
  - Eyelid retraction [Recovered/Resolved]
  - Lid lag [Recovered/Resolved]
